FAERS Safety Report 22851972 (Version 2)
Quarter: 2023Q4

REPORT INFORMATION
  Report Type: Spontaneous
  Country: US (occurrence: US)
  Receive Date: 20230823
  Receipt Date: 20231204
  Transmission Date: 20240110
  Serious: Yes (Life-Threatening, Hospitalization, Other)
  Sender: FDA-Public Use
  Company Number: US-SERVIER-S23009238

PATIENT

DRUGS (13)
  1. ASPARLAS [Suspect]
     Active Substance: CALASPARGASE PEGOL-MKNL
     Indication: T-cell type acute leukaemia
     Dosage: 2500 U/M2, OVER 1-2 HOURS, INDUCTION D4
     Route: 042
     Dates: start: 20230525
  2. ASPARLAS [Suspect]
     Active Substance: CALASPARGASE PEGOL-MKNL
     Dosage: 3500 U, CONSOLIDATION D22
     Route: 042
     Dates: start: 20230721, end: 20230721
  3. SULFAMETHOXAZOLE\TRIMETHOPRIM [Concomitant]
     Active Substance: SULFAMETHOXAZOLE\TRIMETHOPRIM
     Indication: T-cell type acute leukaemia
     Dosage: 1600/320 MG/MG QD
     Route: 048
     Dates: start: 202305, end: 202306
  4. FAMOTIDINE [Concomitant]
     Active Substance: FAMOTIDINE
     Indication: T-cell type acute leukaemia
     Dosage: 40 MG, QD
     Route: 048
     Dates: start: 202305
  5. FAMOTIDINE [Concomitant]
     Active Substance: FAMOTIDINE
     Indication: Premedication
     Dosage: 20 MG, QD
     Route: 048
     Dates: start: 20230721, end: 20230721
  6. MERCAPTOPURINE [Concomitant]
     Active Substance: MERCAPTOPURINE
     Indication: T-cell type acute leukaemia
     Dosage: 85 MG, QD
     Route: 048
     Dates: start: 20230703, end: 20230722
  7. VITAMIN D2 [Concomitant]
     Active Substance: ERGOCALCIFEROL
     Indication: Vitamin supplementation
     Dosage: 7142 U, QD
     Route: 048
     Dates: start: 202305
  8. GABAPENTIN [Concomitant]
     Active Substance: GABAPENTIN
     Indication: Pain in jaw
     Dosage: 1800 MG, QD
     Route: 048
     Dates: start: 202305
  9. ONDANSETRON [Concomitant]
     Active Substance: ONDANSETRON
     Indication: Nausea
     Dosage: 24 MG, QD
     Route: 048
     Dates: start: 202305
  10. ONDANSETRON [Concomitant]
     Active Substance: ONDANSETRON
     Indication: Vomiting
  11. LEVOFLOXACIN [Concomitant]
     Active Substance: LEVOFLOXACIN
     Indication: Neutropenia
     Dosage: 500 MG, QD
     Route: 048
     Dates: start: 202306, end: 202307
  12. VORICONAZOLE [Concomitant]
     Active Substance: VORICONAZOLE
     Indication: Neutropenia
     Dosage: 200 MG, QD
     Route: 048
     Dates: start: 202306, end: 202307
  13. DRONABINOL [Concomitant]
     Active Substance: DRONABINOL
     Indication: Decreased appetite
     Dosage: 2.5 MG, QD
     Route: 048
     Dates: start: 202307, end: 202308

REACTIONS (1)
  - Anaphylactic reaction [Recovered/Resolved]

NARRATIVE: CASE EVENT DATE: 20230721
